FAERS Safety Report 8545881-5 (Version None)
Quarter: 2012Q3

REPORT INFORMATION
  Report Type: 
  Country: None (occurrence: None)
  Receive Date: 20120727
  Receipt Date: 20111116
  Transmission Date: 20120928
  Serious: No
  Sender: FDA-Public Use
  Company Number: US-ASTRAZENECA-2011SE69878

PATIENT
  Age: 53 Year
  Sex: Male
  Weight: 47.6 kg

DRUGS (5)
  1. SEROQUEL [Suspect]
     Route: 048
     Dates: start: 20111107
  2. SEROQUEL [Suspect]
     Indication: DEPRESSION
     Route: 048
  3. KEPPRA [Concomitant]
     Indication: CONVULSION
  4. SEROQUEL [Suspect]
     Route: 048
     Dates: start: 20111107
  5. SEROQUEL [Suspect]
     Indication: BIPOLAR DISORDER
     Route: 048

REACTIONS (3)
  - VERTIGO [None]
  - NAUSEA [None]
  - DRUG DOSE OMISSION [None]
